FAERS Safety Report 6809380-0 (Version None)
Quarter: 2010Q2

REPORT INFORMATION
  Report Type: 
  Country: None (occurrence: None)
  Receive Date: 20100630
  Receipt Date: 20100622
  Transmission Date: 20101027
  Serious: Yes (Hospitalization, Other)
  Sender: FDA-Public Use
  Company Number: ES-WYE-G05980610

PATIENT
  Age: 74 Year
  Sex: Female

DRUGS (4)
  1. TYGACIL [Suspect]
     Indication: DIABETIC FOOT INFECTION
     Route: 042
     Dates: start: 20100224, end: 20100309
  2. CALCIUM GLUCONATE [Concomitant]
     Dosage: UNKNOWN
     Route: 065
     Dates: start: 20100223, end: 20100407
  3. MAGNESIUM LACTATE [Concomitant]
     Dates: start: 20100224
  4. FLUCONAZOLE [Interacting]
     Indication: DRUG USE FOR UNKNOWN INDICATION
     Route: 042
     Dates: start: 20100301, end: 20100311

REACTIONS (5)
  - BLOOD ALKALINE PHOSPHATASE INCREASED [None]
  - CHOLESTASIS [None]
  - DRUG INTERACTION [None]
  - GAMMA-GLUTAMYLTRANSFERASE INCREASED [None]
  - TRANSAMINASES INCREASED [None]
